FAERS Safety Report 12439374 (Version 2)
Quarter: 2016Q3

REPORT INFORMATION
  Report Type: Spontaneous
  Country: US (occurrence: US)
  Receive Date: 20160606
  Receipt Date: 20160706
  Transmission Date: 20161109
  Serious: No
  Sender: FDA-Public Use
  Company Number: US-JAZZ-2016-US-009880

PATIENT
  Age: 63 Year
  Sex: Male

DRUGS (19)
  1. FENTANYL. [Suspect]
     Active Substance: FENTANYL
     Indication: INTERVERTEBRAL DISC DEGENERATION
     Dosage: 24.358 ?G, QH
     Route: 037
  2. ASPIRIN. [Concomitant]
     Active Substance: ASPIRIN
  3. VICODIN [Concomitant]
     Active Substance: ACETAMINOPHEN\HYDROCODONE BITARTRATE
  4. PRIALT [Suspect]
     Active Substance: ZICONOTIDE ACETATE
     Indication: INTERVERTEBRAL DISC DEGENERATION
     Dosage: 3 ?G, SINGLE
     Route: 037
     Dates: start: 20160525
  5. PRIALT [Suspect]
     Active Substance: ZICONOTIDE ACETATE
     Indication: SPINAL PAIN
     Dosage: 3 ?G, SINGLE
     Route: 037
     Dates: start: 20160525
  6. FENTANYL. [Suspect]
     Active Substance: FENTANYL
     Indication: SPINAL PAIN
  7. LISINOPRIL. [Concomitant]
     Active Substance: LISINOPRIL
  8. MIRALAX [Concomitant]
     Active Substance: POLYETHYLENE GLYCOL 3350
  9. KEFLEX [Concomitant]
     Active Substance: CEPHALEXIN
  10. TIZANIDINE. [Concomitant]
     Active Substance: TIZANIDINE
  11. METOPROLOL. [Concomitant]
     Active Substance: METOPROLOL
  12. PRAVASTATIN. [Concomitant]
     Active Substance: PRAVASTATIN
  13. CYANOCOBALAMIN. [Concomitant]
     Active Substance: CYANOCOBALAMIN
  14. PRIALT [Suspect]
     Active Substance: ZICONOTIDE ACETATE
     Indication: PAIN
     Dosage: 3 ?G, SINGLE
     Route: 037
     Dates: start: 20160525
  15. BUPIVACAINE. [Suspect]
     Active Substance: BUPIVACAINE
     Indication: SPINAL PAIN
  16. NITROGLYCERIN. [Concomitant]
     Active Substance: NITROGLYCERIN
  17. AMITRIPTYLINE HCL [Concomitant]
     Active Substance: AMITRIPTYLINE
  18. BUPIVACAINE. [Suspect]
     Active Substance: BUPIVACAINE
     Indication: INTERVERTEBRAL DISC DEGENERATION
     Dosage: 0.495 MG, QH
     Route: 037
  19. OMEPRAZOLE. [Concomitant]
     Active Substance: OMEPRAZOLE

REACTIONS (6)
  - Dizziness [Recovering/Resolving]
  - Chills [Recovering/Resolving]
  - Off label use [Recovering/Resolving]
  - Overdose [Recovering/Resolving]
  - Burning sensation [Recovering/Resolving]
  - Nausea [Recovering/Resolving]

NARRATIVE: CASE EVENT DATE: 20160525
